FAERS Safety Report 19473343 (Version 1)
Quarter: 2021Q2

REPORT INFORMATION
  Report Type: Spontaneous
  Country: GB (occurrence: GB)
  Receive Date: 20210629
  Receipt Date: 20210629
  Transmission Date: 20210717
  Serious: Yes (Death, Life-Threatening, Hospitalization, Disabling)
  Sender: FDA-Public Use
  Company Number: GB-MYLANLABS-2021M1038527

PATIENT
  Age: 27 Year
  Sex: Female

DRUGS (2)
  1. TACROLIMUS. [Suspect]
     Active Substance: TACROLIMUS
     Indication: KIDNEY TRANSPLANT REJECTION
     Dosage: UNK
  2. OMEPRAZOLE MYLAN [Suspect]
     Active Substance: OMEPRAZOLE
     Indication: RENAL FAILURE
     Dosage: UNK

REACTIONS (7)
  - Brain oedema [Fatal]
  - Blood calcium decreased [Unknown]
  - Drug interaction [Unknown]
  - Renal impairment [Unknown]
  - Blood magnesium decreased [Unknown]
  - Acidosis [Fatal]
  - Circulatory collapse [Unknown]

NARRATIVE: CASE EVENT DATE: 201610
